FAERS Safety Report 17972173 (Version 1)
Quarter: 2020Q3

REPORT INFORMATION
  Report Type: Report from Study
  Country: None (occurrence: US)
  Receive Date: 20200701
  Receipt Date: 20200701
  Transmission Date: 20201103
  Serious: Yes (Hospitalization, Other)
  Sender: FDA-Public Use
  Company Number: US-ABBVIE-20K-163-3465686-00

PATIENT
  Sex: Female
  Weight: 81.72 kg

DRUGS (1)
  1. SKYRIZI [Suspect]
     Active Substance: RISANKIZUMAB-RZAA
     Indication: PSORIASIS
     Dosage: 75 MG/ 0.83 ML
     Route: 058
     Dates: start: 2019

REACTIONS (2)
  - Surgery [Unknown]
  - Infection [Unknown]
